FAERS Safety Report 7548814-3 (Version None)
Quarter: 2011Q2

REPORT INFORMATION
  Report Type: 
  Country: None (occurrence: None)
  Receive Date: 20110525
  Receipt Date: 20110202
  Transmission Date: 20111010
  Serious: No
  Sender: FDA-Public Use
  Company Number: 322671

PATIENT
  Age: 74 Year
  Sex: Female

DRUGS (1)
  1. VICTOZA [Suspect]
     Indication: TYPE 2 DIABETES MELLITUS
     Dosage: 0.6 MG, QD, SUBCUTANEOUS ; 1.2 MG, QD ; 0.6 MG, QD
     Route: 058

REACTIONS (4)
  - DYSPEPSIA [None]
  - DIZZINESS [None]
  - ERUCTATION [None]
  - NAUSEA [None]
